FAERS Safety Report 4887225-6 (Version None)
Quarter: 2005Q4

REPORT INFORMATION
  Report Type: 
  Country: None (occurrence: None)
  Receive Date: 20051221
  Receipt Date: 20050822
  Transmission Date: 20060501
  Serious: No
  Sender: FDA-Public Use
  Company Number: US-YAMANOUCHI-YPA20050440

PATIENT
  Age: 77 Year
  Sex: Female

DRUGS (5)
  1. VESICARE [Suspect]
     Indication: BLADDER DISORDER
     Dosage: 5 MG QD PO
     Route: 048
  2. LOPRESSOR [Concomitant]
  3. ATIVAN [Concomitant]
  4. NORVASK [Concomitant]
  5. LIPITOR [Concomitant]

REACTIONS (1)
  - ABDOMINAL PAIN UPPER [None]
